FAERS Safety Report 5106523-4 (Version None)
Quarter: 2006Q3

REPORT INFORMATION
  Report Type: 
  Country: None (occurrence: None)
  Receive Date: 20060912
  Receipt Date: 20060901
  Transmission Date: 20061208
  Serious: Yes (Life-Threatening, Other)
  Sender: FDA-Public Use
  Company Number: FR200609000391

PATIENT
  Age: 69 Year
  Sex: Male
  Weight: 58 kg

DRUGS (6)
  1. ZYPREXA [Suspect]
     Dosage: ORAL
     Route: 048
     Dates: start: 20050707, end: 20051220
  2. LITHIUM CARBONATE [Concomitant]
  3. ESCITALOPRAM OXALATE (ESCITALOPRAM OXALATE) [Concomitant]
  4. CELIPROLOL (CELIPROLOL) [Concomitant]
  5. ASPIRIN W/DIPYRIDAMOLE            (ACETYLSALICYLIC ACID, DIPYRIDAMOLE) [Concomitant]
  6. MEDIATENSYL (URAPIDIL) [Concomitant]

REACTIONS (3)
  - NEUROLEPTIC MALIGNANT SYNDROME [None]
  - RENAL FAILURE [None]
  - SHOCK [None]
